FAERS Safety Report 7809978-7 (Version None)
Quarter: 2011Q4

REPORT INFORMATION
  Report Type: 
  Country: None (occurrence: None)
  Receive Date: 20111012
  Receipt Date: 20110928
  Transmission Date: 20120403
  Serious: Yes (Hospitalization)
  Sender: FDA-Public Use
  Company Number: FR-SANOFI-AVENTIS-2011SA063428

PATIENT
  Age: 86 Year
  Sex: Male

DRUGS (9)
  1. PROSCAR [Concomitant]
     Route: 065
  2. LOVENOX [Suspect]
     Indication: THROMBOSIS PROPHYLAXIS
     Route: 058
     Dates: start: 20110823, end: 20110829
  3. IRBESARTAN [Concomitant]
     Route: 065
  4. ESCITALOPRAM OXALATE [Concomitant]
     Route: 065
  5. COUMADIN [Concomitant]
     Route: 065
     Dates: start: 20110427, end: 20110822
  6. ESOMEPRAZOLE SODIUM [Concomitant]
     Route: 065
  7. POTASSIUM CHLORIDE [Concomitant]
     Route: 065
  8. LASIX [Concomitant]
     Route: 065
  9. FLECTOR [Concomitant]
     Route: 065
     Dates: start: 20110706

REACTIONS (3)
  - MUSCLE HAEMORRHAGE [None]
  - ANAEMIA [None]
  - RENAL FAILURE ACUTE [None]
